FAERS Safety Report 16474580 (Version 1)
Quarter: 2019Q3

REPORT INFORMATION
  Report Type: Spontaneous
  Country: US (occurrence: US)
  Receive Date: 20190624
  Receipt Date: 20190624
  Transmission Date: 20191004
  Serious: Yes (Other)
  Sender: FDA-Public Use
  Company Number: None

PATIENT
  Age: 26 Year
  Sex: Female
  Weight: 95.4 kg

DRUGS (7)
  1. VITAMIN E [Concomitant]
     Active Substance: .ALPHA.-TOCOPHEROL
  2. LORANZOPOLE [Concomitant]
  3. ELMIRON [Concomitant]
     Active Substance: PENTOSAN POLYSULFATE SODIUM
  4. VITAMIN B12 [Concomitant]
     Active Substance: CYANOCOBALAMIN
  5. D PROBIOTICS [Concomitant]
  6. CYMBALTA [Suspect]
     Active Substance: DULOXETINE HYDROCHLORIDE
     Indication: PAIN MANAGEMENT
     Dates: start: 20181130
  7. ORILISSA [Concomitant]
     Active Substance: ELAGOLIX SODIUM

REACTIONS (9)
  - Dizziness [None]
  - Influenza like illness [None]
  - Paraesthesia [None]
  - Nausea [None]
  - Asthenia [None]
  - Weight increased [None]
  - Withdrawal syndrome [None]
  - Skin burning sensation [None]
  - Fatigue [None]

NARRATIVE: CASE EVENT DATE: 20190518
